FAERS Safety Report 21546392 (Version 5)
Quarter: 2022Q4

REPORT INFORMATION
  Report Type: Spontaneous
  Country: US (occurrence: US)
  Receive Date: 20221103
  Receipt Date: 20221209
  Transmission Date: 20230113
  Serious: Yes (Other)
  Sender: FDA-Public Use
  Company Number: US-PFIZER INC-202201241790

PATIENT
  Age: 6 Year
  Sex: Female

DRUGS (10)
  1. GENOTROPIN [Suspect]
     Active Substance: SOMATROPIN
     Indication: Adrenal insufficiency
     Dosage: 0.5 MG, CYCLIC [6 DAYS A WEEK AND 1 DAY OFF]
  2. GENOTROPIN [Suspect]
     Active Substance: SOMATROPIN
     Indication: Hypothalamo-pituitary disorder
     Dosage: 0.4 MG, CYCLIC [6 DAYS A WEEK AND 1 DAY OFF]
  3. GENOTROPIN [Suspect]
     Active Substance: SOMATROPIN
     Indication: Thyroid disorder
  4. GENOTROPIN [Suspect]
     Active Substance: SOMATROPIN
     Indication: Congenital multiplex arthrogryposis
  5. GENOTROPIN [Suspect]
     Active Substance: SOMATROPIN
     Indication: Adrenal insufficiency
     Dosage: 0.5 MG, CYCLIC [6 DAYS A WEEK AND 1 DAY OFF]
  6. GENOTROPIN [Suspect]
     Active Substance: SOMATROPIN
     Indication: Hypothalamo-pituitary disorder
     Dosage: 0.4 MG, CYCLIC [6 DAYS A WEEK AND 1 DAY OFF]
  7. GENOTROPIN [Suspect]
     Active Substance: SOMATROPIN
     Indication: Thyroid disorder
  8. GENOTROPIN [Suspect]
     Active Substance: SOMATROPIN
     Indication: Congenital multiplex arthrogryposis
  9. LEVOTHYROXINE [Concomitant]
     Active Substance: LEVOTHYROXINE
     Indication: Thyroid disorder
     Dosage: (TAKES HALF TABLET EVERY MORNING NOW)
     Dates: start: 202207
  10. LEVOTHYROXINE [Concomitant]
     Active Substance: LEVOTHYROXINE
     Dosage: (WHOLE TABLET EVERY MORNING)
     Dates: end: 202207

REACTIONS (4)
  - Incorrect dose administered by device [Unknown]
  - Wrong device used [Unknown]
  - Product dispensing error [Unknown]
  - Weight increased [Unknown]
